FAERS Safety Report 11138641 (Version 2)
Quarter: 2015Q2

REPORT INFORMATION
  Report Type: Report from Study
  Country: CN (occurrence: CN)
  Receive Date: 20150527
  Receipt Date: 20150604
  Transmission Date: 20150821
  Serious: Yes (Hospitalization)
  Sender: FDA-Public Use
  Company Number: PHHY2015CN061209

PATIENT
  Sex: Male
  Weight: 72 kg

DRUGS (5)
  1. SULPERAZONE [Concomitant]
     Active Substance: CEFOPERAZONE SODIUM\SULBACTAM SODIUM
     Indication: ANTI-INFECTIVE THERAPY
     Dosage: 1.5 G, BID
     Route: 065
  2. MYCOPHENOLIC ACID. [Suspect]
     Active Substance: MYCOPHENOLIC ACID
     Indication: RENAL TRANSPLANT
     Dosage: 1500 MG, QD
     Route: 048
     Dates: start: 20150112, end: 20150517
  3. CYTOVENE IV [Concomitant]
     Active Substance: GANCICLOVIR SODIUM
     Indication: ANTI-INFECTIVE THERAPY
     Dosage: 250 MG, UNK
     Route: 065
  4. METHYLPREDNISOLONE. [Concomitant]
     Active Substance: METHYLPREDNISOLONE
     Indication: ANTI-INFECTIVE THERAPY
     Dosage: 500 MG, UNK
     Route: 042
  5. CANDIDA LOKALICID [Concomitant]
     Indication: ANTI-INFECTIVE THERAPY
     Dosage: 50 MG, TID
     Route: 065

REACTIONS (6)
  - Cough [Not Recovered/Not Resolved]
  - Dyspnoea [Not Recovered/Not Resolved]
  - Neutrophil count increased [Not Recovered/Not Resolved]
  - Chest discomfort [Not Recovered/Not Resolved]
  - Pyrexia [Not Recovered/Not Resolved]
  - White blood cell count increased [Not Recovered/Not Resolved]
